FAERS Safety Report 8020168-8 (Version None)
Quarter: 2012Q1

REPORT INFORMATION
  Report Type: 
  Country: None (occurrence: None)
  Receive Date: 20120103
  Receipt Date: 20111229
  Transmission Date: 20120608
  Serious: Yes (Other)
  Sender: FDA-Public Use
  Company Number: GB-B.I. PHARMACEUTICALS,INC./RIDGEFIELD-2011-UK-01426UK

PATIENT
  Age: 76 Year
  Sex: Male
  Weight: 69 kg

DRUGS (9)
  1. ADALAT CC [Concomitant]
     Dosage: 90 MG
     Route: 048
  2. PREDNISOLONE [Concomitant]
  3. PRAMIPEXOLE DIHYCHLLORIDE [Suspect]
     Indication: PARKINSON'S DISEASE
     Route: 048
  4. RANITIDINE [Concomitant]
     Dosage: 150 MG
     Route: 048
  5. PROPRANOLOL [Concomitant]
     Dosage: 10 MG
     Route: 048
  6. ARANESP [Concomitant]
     Indication: ANAEMIA
     Dosage: 20 MCG
     Route: 058
  7. ALFACALCIDOL [Concomitant]
     Dosage: 0.25 MCG
  8. PERINDOPRIL [Concomitant]
     Dosage: 8 MG
  9. FUROSEMIDE [Concomitant]
     Dosage: 40 MG
     Route: 048

REACTIONS (4)
  - NEPHRITIS [None]
  - RENAL IMPAIRMENT [None]
  - RENAL FAILURE CHRONIC [None]
  - RENAL TUBULAR DISORDER [None]
